FAERS Safety Report 21001026 (Version 1)
Quarter: 2022Q2

REPORT INFORMATION
  Report Type: Report from Study
  Country: JP (occurrence: JP)
  Receive Date: 20220624
  Receipt Date: 20220624
  Transmission Date: 20220720
  Serious: Yes (Hospitalization)
  Sender: FDA-Public Use
  Company Number: JP-SA-2022SA058517

PATIENT
  Age: 59 Year
  Sex: Female
  Weight: 52.5 kg

DRUGS (4)
  1. SARILUMAB [Suspect]
     Active Substance: SARILUMAB
     Indication: Rheumatoid arthritis
     Dosage: ONCE PER 2 WEEKS, 1 DOSE AT A TIME
     Route: 058
     Dates: start: 20211207, end: 20220104
  2. LANSOPRAZOLE [Concomitant]
     Active Substance: LANSOPRAZOLE
     Indication: Gastritis prophylaxis
     Dosage: AFTER BREAKFAST
     Route: 048
     Dates: start: 20200714
  3. CELECOXIB [Concomitant]
     Active Substance: CELECOXIB
     Indication: Rheumatoid arthritis
     Dosage: AFTER BREAKFAST
     Route: 048
     Dates: start: 20210512
  4. ALENDRONATE [Concomitant]
     Active Substance: ALENDRONATE SODIUM
     Indication: Osteoporosis
     Dosage: ON AWAKENING
     Route: 048
     Dates: start: 20190312

REACTIONS (4)
  - Myelitis [Recovered/Resolved]
  - Back pain [Recovered/Resolved]
  - Pyrexia [Recovered/Resolved]
  - Erythema [Not Recovered/Not Resolved]

NARRATIVE: CASE EVENT DATE: 20220104
